FAERS Safety Report 5555237-5 (Version None)
Quarter: 2007Q4

REPORT INFORMATION
  Report Type: 
  Country: None (occurrence: None)
  Receive Date: 20071213
  Receipt Date: 20071205
  Transmission Date: 20080405
  Serious: Yes (Death, Life-Threatening)
  Sender: FDA-Public Use
  Company Number: US-BAXTER-2007BH008877

PATIENT
  Age: 8 Month
  Sex: Male
  Weight: 4 kg

DRUGS (8)
  1. FENTANYL CITRATE [Suspect]
     Indication: ANAESTHESIA
     Dosage: DOSE UNIT:UNKNOWN
     Route: 065
  2. ROCURONIUM BROMIDE [Suspect]
     Indication: ANAESTHESIA
     Dosage: DOSE UNIT:UNKNOWN
     Route: 065
  3. SEVOFLURANE [Suspect]
     Indication: ANAESTHESIA
     Dosage: DOSE UNIT:UNKNOWN
     Route: 065
  4. DIPRIVAN [Suspect]
     Indication: ANAESTHESIA
     Dosage: DOSE UNIT:UNKNOWN
     Route: 065
  5. CISATRACURIUM [Concomitant]
     Indication: ANAESTHESIA
     Dosage: DOSE UNIT:UNKNOWN
     Route: 065
  6. OXYGEN [Concomitant]
     Indication: ANAESTHESIA
     Dosage: DOSE UNIT:UNKNOWN
     Route: 065
  7. ISOFLURANE [Concomitant]
     Indication: ANAESTHESIA
     Dosage: DOSE UNIT:UNKNOWN
     Route: 065
  8. REMIFENTANIL [Concomitant]
     Indication: ANAESTHESIA
     Dosage: DOSE UNIT:UNKNOWN
     Route: 065

REACTIONS (13)
  - BLOOD CREATININE INCREASED [None]
  - BRADYCARDIA [None]
  - COAGULOPATHY [None]
  - CONVULSION [None]
  - FAMILIAL RISK FACTOR [None]
  - HYPERTHERMIA [None]
  - HYPOCALCAEMIA [None]
  - HYPOKALAEMIA [None]
  - HYPOMAGNESAEMIA [None]
  - HYPOTENSION [None]
  - METABOLIC ACIDOSIS [None]
  - RENAL FAILURE [None]
  - RHABDOMYOLYSIS [None]
